FAERS Safety Report 16635961 (Version 1)
Quarter: 2019Q3

REPORT INFORMATION
  Report Type: Spontaneous
  Country: MM (occurrence: MM)
  Receive Date: 20190726
  Receipt Date: 20190726
  Transmission Date: 20191004
  Serious: Yes (Hospitalization, Other)
  Sender: FDA-Public Use
  Company Number: MM-JNJFOC-20190726495

PATIENT
  Age: 48 Year
  Sex: Female
  Weight: 31 kg

DRUGS (11)
  1. GLUCOSE [Concomitant]
     Active Substance: DEXTROSE
     Indication: HYPOGLYCAEMIA
     Dosage: 50%, 2 AMPULES STAT.
     Route: 042
     Dates: start: 20190617, end: 20190617
  2. CLOFAZIMINE [Suspect]
     Active Substance: CLOFAZIMINE
     Indication: TUBERCULOSIS
     Route: 048
     Dates: start: 20180813
  3. MANNYL [Concomitant]
     Indication: INTRACRANIAL PRESSURE INCREASED
     Dosage: 1 BOTTLE
     Route: 042
     Dates: start: 20190618, end: 20190618
  4. METFORMIN [Concomitant]
     Active Substance: METFORMIN HYDROCHLORIDE
     Indication: DIABETES MELLITUS
     Route: 048
     Dates: start: 20190621
  5. INSULIN MIXTARD [Concomitant]
     Active Substance: INSULIN HUMAN
     Indication: DIABETES MELLITUS
     Dosage: MORNING 12/ EVENING 8
     Route: 058
     Dates: start: 20190506, end: 20190621
  6. RANITIDINE. [Concomitant]
     Active Substance: RANITIDINE
     Indication: GASTRITIS
     Route: 065
     Dates: start: 20190710
  7. BEDAQUILINE [Suspect]
     Active Substance: BEDAQUILINE
     Indication: TUBERCULOSIS
     Route: 048
     Dates: start: 20180813
  8. CO-AMOXICLAV                       /02043401/ [Suspect]
     Active Substance: AMOXICILLIN\CLAVULANIC ACID
     Indication: TUBERCULOSIS
     Dosage: TWICE A DAY  6 WEEKS
     Route: 048
     Dates: start: 20180813
  9. IMIPENEM [Suspect]
     Active Substance: IMIPENEM
     Indication: TUBERCULOSIS
     Dosage: TWICE A DAY 6 WEEKS
     Route: 042
     Dates: start: 20180813
  10. PYRAZINAMIDE. [Suspect]
     Active Substance: PYRAZINAMIDE
     Indication: TUBERCULOSIS
     Route: 048
     Dates: start: 20180813
  11. DELAMANID [Suspect]
     Active Substance: DELAMANID
     Indication: TUBERCULOSIS
     Route: 048
     Dates: start: 20180813

REACTIONS (5)
  - Muscle contractions involuntary [Unknown]
  - Partial seizures [Unknown]
  - Vomiting [Recovered/Resolved]
  - Syncope [Unknown]
  - Hyponatraemia [Unknown]

NARRATIVE: CASE EVENT DATE: 20190617
